FAERS Safety Report 8112230-6 (Version None)
Quarter: 2012Q1

REPORT INFORMATION
  Report Type: 
  Country: None (occurrence: None)
  Receive Date: 20120203
  Receipt Date: 20120202
  Transmission Date: 20120608
  Serious: No
  Sender: FDA-Public Use
  Company Number: US-PFIZER INC-2012029600

PATIENT
  Sex: Female
  Weight: 52.154 kg

DRUGS (2)
  1. CHANTIX [Suspect]
     Dosage: 1 MG, 2X/DAY
     Route: 048
     Dates: start: 20120101
  2. CHANTIX [Suspect]
     Indication: SMOKING CESSATION THERAPY
     Dosage: 0.5 MG, 1X/DAY
     Route: 048
     Dates: start: 20120114, end: 20120101

REACTIONS (5)
  - ARTHRALGIA [None]
  - FRUSTRATION [None]
  - EMOTIONAL DISORDER [None]
  - MYALGIA [None]
  - MUSCULOSKELETAL PAIN [None]
